FAERS Safety Report 21893559 (Version 1)
Quarter: 2023Q1

REPORT INFORMATION
  Report Type: Spontaneous
  Country: FR (occurrence: FR)
  Receive Date: 20230121
  Receipt Date: 20230121
  Transmission Date: 20230418
  Serious: Yes (Hospitalization, Other)
  Sender: FDA-Public Use
  Company Number: FR-AFSSAPS-LL2023000011

PATIENT
  Age: 67 Year
  Sex: Male

DRUGS (3)
  1. NEBIVOLOL [Suspect]
     Active Substance: NEBIVOLOL
     Indication: Coronary artery disease
     Dosage: 1 DOSAGE FORM
     Route: 065
     Dates: end: 202212
  2. FLUOROURACIL [Suspect]
     Active Substance: FLUOROURACIL
     Indication: Pulmonary mass
     Dosage: UNK
     Route: 065
     Dates: start: 20220506, end: 202212
  3. OXALIPLATIN [Suspect]
     Active Substance: OXALIPLATIN
     Indication: Pulmonary mass
     Dosage: UNK
     Route: 065
     Dates: start: 20220506, end: 202212

REACTIONS (1)
  - Interstitial lung disease [Not Recovered/Not Resolved]

NARRATIVE: CASE EVENT DATE: 20221201
